FAERS Safety Report 9214807 (Version 1)
Quarter: 2013Q2

REPORT INFORMATION
  Report Type: Spontaneous
  Country: US (occurrence: US)
  Receive Date: 20130405
  Receipt Date: 20130405
  Transmission Date: 20140414
  Serious: No
  Sender: FDA-Public Use
  Company Number: US-009507513-1304USA001117

PATIENT
  Age: 74 Year
  Sex: Female

DRUGS (2)
  1. ZOSTAVAX [Suspect]
     Indication: PROPHYLAXIS
     Route: 065
     Dates: start: 20130314, end: 20130314
  2. DULERA [Suspect]
     Indication: PULMONARY ARTERIAL HYPERTENSION
     Dosage: UNK, BID
     Route: 055
     Dates: start: 20130325

REACTIONS (1)
  - Urticaria [Unknown]
